FAERS Safety Report 8573551-6 (Version None)
Quarter: 2012Q3

REPORT INFORMATION
  Report Type: 
  Country: None (occurrence: None)
  Receive Date: 20120806
  Receipt Date: 20120727
  Transmission Date: 20120928
  Serious: Yes (Death, Life-Threatening)
  Sender: FDA-Public Use
  Company Number: JP-AMGEN-JPNCT2012038565

PATIENT
  Age: 57 Year
  Sex: Female
  Weight: 51 kg

DRUGS (16)
  1. ROMIPLOSTIM - KHK [Suspect]
     Dosage: 4 MUG, Q2WK
     Route: 058
     Dates: start: 20111214, end: 20111228
  2. PLETAL [Concomitant]
     Indication: PROPHYLAXIS
     Dosage: UNK
     Route: 048
  3. LASIX [Concomitant]
     Indication: OEDEMA
     Dosage: UNK
     Route: 048
  4. CILOSTAZOL [Concomitant]
     Indication: PROPHYLAXIS
     Dosage: UNK
     Route: 048
  5. ROMIPLOSTIM - KHK [Suspect]
     Indication: IDIOPATHIC THROMBOCYTOPENIC PURPURA
     Dosage: 1 MUG, QWK
     Route: 058
     Dates: start: 20110720, end: 20110803
  6. ROMIPLOSTIM - KHK [Suspect]
     Dosage: 2 MUG, QWK
     Route: 058
     Dates: start: 20110921, end: 20111005
  7. MIGLITOL [Concomitant]
     Indication: DIABETES MELLITUS
     Dosage: UNK
     Route: 048
  8. ROMIPLOSTIM - KHK [Suspect]
     Dosage: 2 MUG, QWK
     Route: 058
     Dates: start: 20110810, end: 20110817
  9. ROMIPLOSTIM - KHK [Suspect]
     Dosage: 1 MUG, Q2WK
     Route: 058
     Dates: start: 20110824, end: 20110907
  10. URSO 250 [Concomitant]
     Indication: LIVER DISORDER
     Dosage: UNK
     Route: 048
  11. ROMIPLOSTIM - KHK [Suspect]
     Dosage: 3 MUG, QWK
     Route: 058
     Dates: start: 20111012, end: 20111109
  12. ROMIPLOSTIM - KHK [Suspect]
     Dosage: 3 MUG, QWK
     Route: 058
     Dates: start: 20111130, end: 20111130
  13. PREDNISOLONE [Concomitant]
     Indication: IDIOPATHIC THROMBOCYTOPENIC PURPURA
     Dosage: 10 MG, QD
     Route: 048
     Dates: start: 20080623, end: 20120103
  14. DIOVAN [Concomitant]
     Indication: HYPERTENSION
     Dosage: UNK
     Route: 048
  15. KOLANTYL [Concomitant]
     Indication: PROPHYLAXIS
     Dosage: UNK
     Route: 048
  16. LANSOPRAZOLE [Concomitant]
     Indication: PROPHYLAXIS
     Dosage: UNK
     Route: 048

REACTIONS (4)
  - WHITE BLOOD CELL COUNT INCREASED [None]
  - ANAEMIA [None]
  - SEPSIS [None]
  - CEREBRAL INFARCTION [None]
